FAERS Safety Report 10583587 (Version 1)
Quarter: 2014Q4

REPORT INFORMATION
  Report Type: Spontaneous
  Country: US (occurrence: None)
  Receive Date: 20141112
  Receipt Date: 20141112
  Transmission Date: 20150529
  Serious: Yes (Hospitalization, Other)
  Sender: FDA-Public Use
  Company Number: US-ZYDUS-005322

PATIENT
  Age: 3 Month
  Sex: Male

DRUGS (2)
  1. DULOXETINE (DULOXETINE) (DULOXETINE) [Suspect]
     Active Substance: DULOXETINE
     Route: 063
  2. BRIMONIDINE W / TIMOLOL [Concomitant]

REACTIONS (6)
  - Haemangioma [None]
  - Lethargy [None]
  - Hypotonia [None]
  - Exposure during breast feeding [None]
  - Pallor [None]
  - Hypothermia [None]
